FAERS Safety Report 11917692 (Version 1)
Quarter: 2016Q1

REPORT INFORMATION
  Report Type: Spontaneous
  Country: US (occurrence: US)
  Receive Date: 20160114
  Receipt Date: 20160114
  Transmission Date: 20160526
  Serious: Yes (Hospitalization)
  Sender: FDA-Public Use
  Company Number: US-ACTELION-A-NJ2016-129622

PATIENT
  Age: 89 Year
  Sex: Male

DRUGS (19)
  1. VALCHLOR [Suspect]
     Active Substance: MECHLORETHAMINE
     Indication: MYCOSIS FUNGOIDES STAGE IV
     Dosage: UNK
     Route: 061
     Dates: start: 20151111
  2. METHOXSALEN. [Concomitant]
     Active Substance: METHOXSALEN
  3. PRAVASTATIN [Concomitant]
     Active Substance: PRAVASTATIN\PRAVASTATIN SODIUM
  4. FLOMAX [Concomitant]
     Active Substance: TAMSULOSIN HYDROCHLORIDE
     Dosage: UNK
  5. DESONIDE. [Concomitant]
     Active Substance: DESONIDE
     Dosage: UNK
  6. TOPROL XL [Concomitant]
     Active Substance: METOPROLOL SUCCINATE
  7. ASPIRIN W/DIPYRIDAMOLE [Concomitant]
  8. PYRIDIUM [Concomitant]
     Active Substance: PHENAZOPYRIDINE
  9. AMBIEN [Concomitant]
     Active Substance: ZOLPIDEM TARTRATE
  10. ADVAIR HFA [Concomitant]
     Active Substance: FLUTICASONE PROPIONATE\SALMETEROL XINAFOATE
     Dosage: UNK
  11. FLUCONAZOLE. [Concomitant]
     Active Substance: FLUCONAZOLE
     Dosage: UNK
  12. CLOBETASOL [Concomitant]
     Active Substance: CLOBETASOL
     Dosage: UNK
  13. BEXAROTENE. [Concomitant]
     Active Substance: BEXAROTENE
     Dosage: UNK
  14. METHOTREXATE [Concomitant]
     Active Substance: METHOTREXATE
  15. PREDNISOLONE. [Concomitant]
     Active Substance: PREDNISOLONE
     Dosage: UNK
  16. AMOXICILLIN. [Concomitant]
     Active Substance: AMOXICILLIN
     Dosage: UNK
  17. NORVASC [Concomitant]
     Active Substance: AMLODIPINE BESYLATE
     Dosage: UNK
  18. PREDNISONE. [Concomitant]
     Active Substance: PREDNISONE
     Dosage: UNK
  19. FOLIC ACID. [Concomitant]
     Active Substance: FOLIC ACID

REACTIONS (4)
  - Failure to thrive [Not Recovered/Not Resolved]
  - Mouth ulceration [Not Recovered/Not Resolved]
  - Hypophagia [Not Recovered/Not Resolved]
  - Fall [Not Recovered/Not Resolved]
